FAERS Safety Report 9120172 (Version 1)
Quarter: 2013Q1

REPORT INFORMATION
  Report Type: Report from Study
  Country: CA (occurrence: CA)
  Receive Date: 20130226
  Receipt Date: 20130226
  Transmission Date: 20140127
  Serious: Yes (Hospitalization)
  Sender: FDA-Public Use
  Company Number: CA-JNJFOC-20130213709

PATIENT
  Age: 35 Year
  Sex: Male
  Weight: 87 kg

DRUGS (3)
  1. REMICADE [Suspect]
     Indication: PSORIASIS
     Dosage: 3RD INFUSION
     Route: 042
     Dates: start: 20130207
  2. REMICADE [Suspect]
     Indication: PSORIASIS
     Dosage: 0-2-6 WEEK LOADING
     Route: 042
     Dates: start: 20121123
  3. OLMETEC [Concomitant]
     Route: 065

REACTIONS (1)
  - Type 2 diabetes mellitus [Unknown]
